FAERS Safety Report 10370306 (Version 1)
Quarter: 2014Q1

REPORT INFORMATION
  Report Type: Spontaneous
  Country: US (occurrence: None)
  Receive Date: 20140306
  Receipt Date: 20140306
  Transmission Date: 20141002
  Serious: Yes (Other)
  Sender: FDA-Public Use
  Company Number: 163-21880-13072009

PATIENT
  Age: 73 Year
  Sex: Male

DRUGS (6)
  1. REVLIMID [Suspect]
     Indication: PLASMA CELL MYELOMA
     Route: 048
     Dates: start: 20121220
  2. UROXATRAL [Concomitant]
  3. ZOMETA [Concomitant]
  4. ACYCLOVIR [Concomitant]
  5. NEXIUM [Concomitant]
  6. WARFARIN [Concomitant]

REACTIONS (1)
  - Plasma cell myeloma [None]
